FAERS Safety Report 5565333-4 (Version None)
Quarter: 2007Q4

REPORT INFORMATION
  Report Type: 
  Country: None (occurrence: None)
  Receive Date: 20071218
  Receipt Date: 20031201
  Transmission Date: 20080405
  Serious: Yes (Death, Hospitalization)
  Sender: FDA-Public Use
  Company Number: ES-ROCHE-352913

PATIENT
  Age: 30 Year
  Sex: Male

DRUGS (3)
  1. MYCOPHENOLATE MOFETIL [Suspect]
     Indication: DRUG USE FOR UNKNOWN INDICATION
     Route: 065
     Dates: start: 20010201, end: 20010501
  2. PREDNISONE [Concomitant]
  3. CYCLOSPORINE [Concomitant]

REACTIONS (2)
  - HERPES ZOSTER [None]
  - MULTI-ORGAN FAILURE [None]
